FAERS Safety Report 7998750-3 (Version None)
Quarter: 2011Q4

REPORT INFORMATION
  Report Type: 
  Country: None (occurrence: None)
  Receive Date: 20111221
  Receipt Date: 20111214
  Transmission Date: 20120403
  Serious: Yes (Hospitalization, Other)
  Sender: FDA-Public Use
  Company Number: US-US-EMD SERONO, INC.-7082006

PATIENT
  Sex: Female
  Weight: 54 kg

DRUGS (6)
  1. REBIF [Suspect]
     Indication: MULTIPLE SCLEROSIS
     Route: 058
     Dates: start: 20110105
  2. NOVOLOG [Concomitant]
     Indication: TYPE 1 DIABETES MELLITUS
     Route: 058
  3. BACLOFEN [Concomitant]
     Indication: MUSCLE SPASTICITY
     Route: 048
  4. CELEXA [Concomitant]
     Indication: DEPRESSION
     Route: 048
  5. NEURONTIN [Concomitant]
     Indication: PAIN
     Route: 048
  6. LEVEMIR [Concomitant]
     Indication: TYPE 1 DIABETES MELLITUS
     Route: 058

REACTIONS (10)
  - MUSCLE TIGHTNESS [None]
  - HEADACHE [None]
  - BLOOD IRON DECREASED [None]
  - INJECTION SITE NODULE [None]
  - INJECTION SITE MASS [None]
  - PARAESTHESIA [None]
  - INJECTION SITE PAIN [None]
  - HAEMOGLOBIN ABNORMAL [None]
  - HYPOAESTHESIA [None]
  - VAGINAL HAEMORRHAGE [None]
